FAERS Safety Report 20819906 (Version 2)
Quarter: 2022Q3

REPORT INFORMATION
  Report Type: Spontaneous
  Country: US (occurrence: US)
  Receive Date: 20220512
  Receipt Date: 20220822
  Transmission Date: 20221027
  Serious: No
  Sender: FDA-Public Use
  Company Number: US-PFIZER INC-202200175494

PATIENT
  Age: 49 Year
  Sex: Female

DRUGS (1)
  1. XELJANZ [Suspect]
     Active Substance: TOFACITINIB CITRATE
     Indication: Rheumatoid arthritis
     Dosage: 5 MG, 2X/DAY
     Route: 048
     Dates: start: 20211216

REACTIONS (6)
  - Intentional dose omission [Unknown]
  - Malaise [Unknown]
  - Discouragement [Recovering/Resolving]
  - Depression [Recovering/Resolving]
  - Urinary tract infection [Unknown]
  - Renal disorder [Unknown]
